FAERS Safety Report 13741564 (Version 2)
Quarter: 2017Q3

REPORT INFORMATION
  Report Type: Spontaneous
  Country: US (occurrence: US)
  Receive Date: 20170711
  Receipt Date: 20170803
  Transmission Date: 20171127
  Serious: Yes (Other)
  Sender: FDA-Public Use
  Company Number: US-AMGEN-USASP2017096821

PATIENT
  Age: 91 Year
  Sex: Male
  Weight: 58.5 kg

DRUGS (16)
  1. IODINE SOLUTION [Concomitant]
     Dosage: 95 MUG, UNK
     Dates: start: 20170313
  2. BUMETANIDE. [Concomitant]
     Active Substance: BUMETANIDE
     Dosage: 1 MG, QD
     Route: 048
     Dates: start: 20160510
  3. CALCIUM [Concomitant]
     Active Substance: CALCIUM
     Dosage: 250 MG, UNK
     Route: 048
     Dates: start: 20161115
  4. FINASTERIDE. [Concomitant]
     Active Substance: FINASTERIDE
     Dosage: 5 MG, QD
     Route: 048
     Dates: start: 20170515
  5. BUMEX [Concomitant]
     Active Substance: BUMETANIDE
     Dosage: 1 MG, QD
  6. COD LIVER OIL [Concomitant]
     Active Substance: COD LIVER OIL
     Dosage: UNK UNK, QD
     Route: 048
     Dates: start: 20141202
  7. ATENOLOL. [Concomitant]
     Active Substance: ATENOLOL
     Dosage: 25 MG, QD
     Route: 048
     Dates: start: 20150427
  8. CARDIO [Concomitant]
     Dosage: UNK UNK, QD
     Route: 048
     Dates: start: 20141202
  9. HORSECHESTNUT [Concomitant]
     Dosage: UNK
     Dates: start: 20160725
  10. PROSCAR [Concomitant]
     Active Substance: FINASTERIDE
     Dosage: UNK UNK, QOD
  11. VITAMIN B COMPLEX [Concomitant]
     Active Substance: CYANOCOBALAMIN\DEXPANTHENOL\NIACINAMIDE\PYRIDOXINE HYDROCHLORIDE\RIBOFLAVIN 5^-PHOSPHATE SODIUM\THIAMINE HYDROCHLORIDE\VITAMIN B COMPLEX
     Dosage: UNK UNK, QD
     Route: 048
     Dates: start: 20160516
  12. PROLIA [Suspect]
     Active Substance: DENOSUMAB
     Indication: OSTEOPOROSIS
     Dosage: 60 MG/ML, UNK
     Route: 058
     Dates: start: 20151120
  13. ZANTAC [Concomitant]
     Active Substance: RANITIDINE HYDROCHLORIDE
     Dosage: 150 MG QD
     Route: 048
     Dates: start: 20170306
  14. VITAMINS [Concomitant]
     Active Substance: VITAMINS
  15. VITAMIN B-6 [Concomitant]
     Active Substance: PYRIDOXINE
     Dosage: 0.8 MG, UNK
     Dates: start: 20170313
  16. VITAMIN C [Concomitant]
     Active Substance: ASCORBIC ACID
     Dosage: 500 MG, QD
     Route: 048
     Dates: start: 20161115

REACTIONS (48)
  - Reactive airways dysfunction syndrome [Unknown]
  - Gastrooesophageal reflux disease [Unknown]
  - Bladder trabeculation [Unknown]
  - Amnesia [Unknown]
  - Peripheral venous disease [Unknown]
  - Spinal column stenosis [Unknown]
  - Hypercalcaemia [Unknown]
  - Anxiety [Recovered/Resolved]
  - Breast mass [Unknown]
  - Arteriosclerosis coronary artery [Unknown]
  - Hyperlipidaemia [Unknown]
  - Osteoarthritis [Unknown]
  - Ischaemic cardiomyopathy [Unknown]
  - Hyperkalaemia [Unknown]
  - Aortic aneurysm [Unknown]
  - Muscular weakness [Unknown]
  - Upper-airway cough syndrome [Unknown]
  - Vitamin B12 deficiency [Unknown]
  - Anaemia [Unknown]
  - Loss of personal independence in daily activities [Unknown]
  - Aortic valve replacement [Unknown]
  - Pulmonary hypertension [Recovered/Resolved]
  - Mitral valve incompetence [Unknown]
  - Atrial fibrillation [Recovered/Resolved]
  - Cardiac failure congestive [Recovered/Resolved]
  - Dry skin [Unknown]
  - Left atrial enlargement [Unknown]
  - Scoliosis [Unknown]
  - Varicose vein [Unknown]
  - Back pain [Unknown]
  - Tricuspid valve incompetence [Unknown]
  - Abdominal pain [Unknown]
  - Essential hypertension [Unknown]
  - Hyponatraemia [Unknown]
  - Constipation [Recovered/Resolved]
  - Basal cell carcinoma [Unknown]
  - Neck pain [Unknown]
  - Chronic kidney disease [Unknown]
  - Hypoglycaemia [Unknown]
  - Mobility decreased [Unknown]
  - Metatarsalgia [Unknown]
  - Muscle spasms [Unknown]
  - Thinking abnormal [Unknown]
  - Benign prostatic hyperplasia [Recovered/Resolved]
  - Depression [Unknown]
  - Gait disturbance [Unknown]
  - Vitamin D deficiency [Unknown]
  - Unevaluable event [Unknown]
